FAERS Safety Report 8218460-7 (Version None)
Quarter: 2012Q1

REPORT INFORMATION
  Report Type: 
  Country: None (occurrence: None)
  Receive Date: 20120319
  Receipt Date: 20120312
  Transmission Date: 20120608
  Serious: Yes (Hospitalization, Other)
  Sender: FDA-Public Use
  Company Number: US-PFIZER INC-2012030918

PATIENT
  Sex: Female
  Weight: 87 kg

DRUGS (10)
  1. CITALOPRAM [Concomitant]
     Dosage: UNK, DAILY
  2. LISINOPRIL [Concomitant]
     Dosage: UNK, DAILY
  3. ATENOLOL [Concomitant]
     Indication: BLOOD PRESSURE ABNORMAL
     Dosage: UNK, DAILY
  4. CHANTIX [Suspect]
     Dosage: 0.5 MG, 2X/DAY
     Dates: start: 20120101
  5. KLONOPIN [Concomitant]
     Dosage: UNK, DAILY
  6. HYDROCHLOROTHIAZIDE [Concomitant]
     Dosage: UNK, DAILY
  7. EFFIENT [Concomitant]
     Dosage: UNK, DAILY
  8. CHANTIX [Suspect]
     Indication: SMOKING CESSATION THERAPY
     Dosage: 0.5 MG, DAILY
     Dates: start: 20120127, end: 20120101
  9. LIPITOR [Concomitant]
     Dosage: UNK, DAILY
  10. ASPIRIN [Concomitant]
     Dosage: UNK, DAILY

REACTIONS (9)
  - FATIGUE [None]
  - VOMITING [None]
  - NAUSEA [None]
  - FEELING ABNORMAL [None]
  - HEADACHE [None]
  - MIGRAINE [None]
  - THROMBOSIS [None]
  - MYALGIA [None]
  - MIDDLE INSOMNIA [None]
